FAERS Safety Report 4435764-4 (Version None)
Quarter: 2004Q3

REPORT INFORMATION
  Report Type: 
  Country: None (occurrence: None)
  Receive Date: 20040826
  Receipt Date: 20040813
  Transmission Date: 20050211
  Serious: Yes (Other)
  Sender: FDA-Public Use
  Company Number: 2004048837

PATIENT
  Sex: Female
  Weight: 71.6683 kg

DRUGS (9)
  1. DILANTIN KAPSEAL [Suspect]
     Indication: EPILEPSY
     Dosage: 300 MG (100 MG, 3 IN 1 D), ORAL; 30 MG (30 MG, 1 IN 1 D), ORAL
     Route: 048
     Dates: end: 19910101
  2. NEURONTIN [Suspect]
     Indication: NEUROPATHY PERIPHERAL
     Dosage: ORAL
     Route: 048
  3. CARDURA [Suspect]
     Indication: HYPERTENSION
     Dosage: 6 MG (6 MG,1 IN 1 D), ORAL
     Route: 048
  4. CARBAMAZEPINE [Suspect]
     Indication: EPILEPSY
     Dates: end: 19910101
  5. OXCARBAZEPINE (OXCARBAZEPINE) [Suspect]
     Indication: CONVULSION
  6. ESTRADIOL [Concomitant]
  7. NABUEMTONE (NABUMETONE) [Concomitant]
  8. FEXOFENADINE HYDROCHLORIDE [Concomitant]
  9. ACETYLSALICYLIC ACID SRT [Concomitant]

REACTIONS (18)
  - ANTICONVULSANT DRUG LEVEL ABOVE THERAPEUTIC [None]
  - ANTICONVULSANT DRUG LEVEL DECREASED [None]
  - ARTHRITIS [None]
  - ASTHENIA [None]
  - BLOOD PRESSURE INCREASED [None]
  - BRADYPHRENIA [None]
  - CARPAL TUNNEL SYNDROME [None]
  - CONDITION AGGRAVATED [None]
  - CONVULSION [None]
  - FALL [None]
  - FATIGUE [None]
  - HIP ARTHROPLASTY [None]
  - HYPERSENSITIVITY [None]
  - HYPOAESTHESIA [None]
  - INJURY [None]
  - MEMORY IMPAIRMENT [None]
  - NEUROPATHY PERIPHERAL [None]
  - SURGICAL PROCEDURE REPEATED [None]
